FAERS Safety Report 5377192-3 (Version None)
Quarter: 2007Q3

REPORT INFORMATION
  Report Type: 
  Country: None (occurrence: None)
  Receive Date: 20070703
  Receipt Date: 20070626
  Transmission Date: 20080115
  Serious: Yes (Hospitalization)
  Sender: FDA-Public Use
  Company Number: US-ELI_LILLY_AND_COMPANY-US200706006153

PATIENT
  Age: 60 Year
  Sex: Female

DRUGS (6)
  1. BYETTA [Suspect]
     Indication: TYPE 2 DIABETES MELLITUS
     Dosage: 5 UG, 2/D
     Route: 058
     Dates: start: 20070201
  2. GLUCOVANCE [Concomitant]
     Indication: TYPE 2 DIABETES MELLITUS
     Dosage: UNK MG, 2/D
     Route: 048
  3. SENOKOT [Concomitant]
     Indication: CONSTIPATION
  4. METAMUCIL [Concomitant]
     Indication: CONSTIPATION
  5. PERI-COLACE [Concomitant]
     Indication: CONSTIPATION
  6. DETROL /USA/ [Concomitant]

REACTIONS (2)
  - CONSTIPATION [None]
  - KNEE ARTHROPLASTY [None]
